FAERS Safety Report 8994938 (Version 3)
Quarter: 2013Q2

REPORT INFORMATION
  Report Type: Spontaneous
  Country: IT (occurrence: None)
  Receive Date: 20121221
  Receipt Date: 20130430
  Transmission Date: 20140414
  Serious: Yes (Hospitalization)
  Sender: FDA-Public Use
  Company Number: TIF2012A00095

PATIENT
  Age: 34 Year
  Sex: Female

DRUGS (3)
  1. LANSOX (LANSOPRAZOLE) [Suspect]
     Indication: INTENTIONAL OVERDOSE
     Dosage: 10 CAPSULES (30 MG), 1 DAY
     Route: 048
     Dates: start: 20121201
  2. TRANEXAMIC ACID (TRANEXAMIC ACID) [Suspect]
     Indication: INTENTIONAL OVERDOSE
     Dosage: (30 DF)
     Route: 048
     Dates: start: 20121201
  3. LUCEN (ESOMEPRAZOLE MAGNESIUM) [Suspect]
     Indication: INTENTIONAL OVERDOSE
     Dosage: 5 TABLETS (40 MG)
     Route: 048
     Dates: start: 20121201

REACTIONS (3)
  - Sopor [None]
  - Drug abuse [None]
  - Intentional overdose [None]
